FAERS Safety Report 16609088 (Version 1)
Quarter: 2019Q3

REPORT INFORMATION
  Report Type: Spontaneous
  Country: US (occurrence: US)
  Receive Date: 20190720
  Receipt Date: 20190720
  Transmission Date: 20191004
  Serious: Yes (Other)
  Sender: FDA-Public Use
  Company Number: None

PATIENT
  Age: 62 Year
  Sex: Female
  Weight: 76.5 kg

DRUGS (4)
  1. VITAMIN D2 [Concomitant]
     Active Substance: ERGOCALCIFEROL
  2. CALCIUM WITH D3 [Concomitant]
  3. OZEMPIC [Suspect]
     Active Substance: SEMAGLUTIDE
  4. OZEMPIC [Suspect]
     Active Substance: SEMAGLUTIDE
     Indication: TYPE 2 DIABETES MELLITUS
     Dosage: ?          QUANTITY:1 INJECTION(S);OTHER FREQUENCY:1 TIME WEEKLY;OTHER ROUTE:INJECTED IN STOMACH AROUND NAVEL?
     Dates: start: 20190607, end: 20190714

REACTIONS (6)
  - Flatulence [None]
  - Diarrhoea [None]
  - Dehydration [None]
  - Back pain [None]
  - Abdominal pain upper [None]
  - Chromaturia [None]

NARRATIVE: CASE EVENT DATE: 20190707
